FAERS Safety Report 15747173 (Version 1)
Quarter: 2018Q4

REPORT INFORMATION
  Report Type: Spontaneous
  Country: US (occurrence: US)
  Receive Date: 20181220
  Receipt Date: 20181220
  Transmission Date: 20190205
  Serious: No
  Sender: FDA-Public Use
  Company Number: US-AVADEL SPECIALTY PHARMACEUTICALS, LLC-2018AVA00473

PATIENT
  Age: 78 Year
  Sex: Male
  Weight: 63.49 kg

DRUGS (12)
  1. L-ARGININE [Concomitant]
     Active Substance: ARGININE
  2. TAMSULOSIN [Concomitant]
     Active Substance: TAMSULOSIN
  3. NOCTIVA [Suspect]
     Active Substance: DESMOPRESSIN ACETATE
     Indication: NOCTURIA
     Dosage: 0.83 ?G, 1X/DAY 30 MINUTES BEFORE BEDTIME
     Route: 045
     Dates: start: 20181102
  4. BABY ASPIRIN [Concomitant]
     Active Substance: ASPIRIN
     Dosage: 2 DOSAGE UNITS
  5. GLIPIZIDE. [Concomitant]
     Active Substance: GLIPIZIDE
  6. OMEPRAZOLE. [Concomitant]
     Active Substance: OMEPRAZOLE
  7. SIMVASTATIN. [Concomitant]
     Active Substance: SIMVASTATIN
     Dosage: 20 MG, 1X/DAY
  8. METFORMIN HCL [Concomitant]
     Active Substance: METFORMIN HYDROCHLORIDE
  9. NIACIN. [Concomitant]
     Active Substance: NIACIN
  10. LOSARTAN. [Concomitant]
     Active Substance: LOSARTAN
  11. VITAMIN D3 [Concomitant]
     Active Substance: CHOLECALCIFEROL
  12. GLUCOSAMINE CHONDROITIN [Concomitant]
     Active Substance: CHONDROITIN SULFATE (BOVINE)\GLUCOSAMINE HYDROCHLORIDE

REACTIONS (2)
  - Product preparation issue [Recovered/Resolved]
  - Drug ineffective [Not Recovered/Not Resolved]

NARRATIVE: CASE EVENT DATE: 20181102
